FAERS Safety Report 15751108 (Version 1)
Quarter: 2018Q4

REPORT INFORMATION
  Report Type: Spontaneous
  Country: US (occurrence: US)
  Receive Date: 20181221
  Receipt Date: 20181221
  Transmission Date: 20190205
  Serious: No
  Sender: FDA-Public Use
  Company Number: US-THERAPEUTICSMD-2018TMD00363

PATIENT
  Age: 49 Year
  Sex: Female
  Weight: 49.89 kg

DRUGS (3)
  1. IMVEXXY [Suspect]
     Active Substance: ESTRADIOL
     Indication: CYSTOCELE
  2. IMVEXXY [Suspect]
     Active Substance: ESTRADIOL
     Indication: PROLAPSE
  3. IMVEXXY [Suspect]
     Active Substance: ESTRADIOL
     Indication: RECTOCELE
     Dosage: 10 ?G, 2X/WEEK BEFORE BED
     Route: 067
     Dates: start: 201810, end: 20181111

REACTIONS (6)
  - Chapped lips [Not Recovered/Not Resolved]
  - Lip blister [Recovered/Resolved]
  - Lip exfoliation [Not Recovered/Not Resolved]
  - Cheilitis [Unknown]
  - Lip swelling [Recovered/Resolved]
  - Off label use [Recovered/Resolved]

NARRATIVE: CASE EVENT DATE: 201810
